FAERS Safety Report 4519000-6 (Version None)
Quarter: 2004Q4

REPORT INFORMATION
  Report Type: 
  Country: None (occurrence: None)
  Receive Date: 20041201
  Receipt Date: 20041116
  Transmission Date: 20050328
  Serious: Yes (Death, Other)
  Sender: FDA-Public Use
  Company Number: 2004US001419

PATIENT
  Age: 15 Year
  Sex: Male

DRUGS (2)
  1. PROGRAF [Suspect]
     Indication: PROPHYLAXIS AGAINST TRANSPLANT REJECTION
  2. METHOTREXATE [Concomitant]

REACTIONS (5)
  - BACTERAEMIA [None]
  - CYTOMEGALOVIRUS INFECTION [None]
  - HEPATIC FAILURE [None]
  - IDIOPATHIC PNEUMONIA SYNDROME [None]
  - VENOOCCLUSIVE LIVER DISEASE [None]
